FAERS Safety Report 6478350-7 (Version None)
Quarter: 2009Q4

REPORT INFORMATION
  Report Type: 
  Country: None (occurrence: None)
  Receive Date: 20091202
  Receipt Date: 20091119
  Transmission Date: 20100525
  Serious: Yes (Other)
  Sender: FDA-Public Use
  Company Number: 2009AP000614

PATIENT
  Age: 37 Year
  Sex: Female

DRUGS (11)
  1. PAROXETINE HYDROCHLORIDE [Suspect]
     Indication: DEPRESSED MOOD
     Dosage: 40 MG; QD
     Dates: start: 19970924, end: 19990101
  2. PAROXETINE HYDROCHLORIDE [Suspect]
     Indication: DEPRESSED MOOD
     Dosage: 40 MG; QD
     Dates: start: 19970429
  3. PAROXETINE HYDROCHLORIDE [Suspect]
     Indication: DEPRESSED MOOD
     Dosage: 40 MG; QD
     Dates: start: 20000907
  4. PAROXETINE HYDROCHLORIDE [Suspect]
     Indication: DEPRESSED MOOD
     Dosage: 40 MG; QD
     Dates: start: 20010801
  5. DIAZEPAM [Concomitant]
  6. VITAMINS NOS (VITAMINS NOS) [Concomitant]
  7. HYPERICUM PERFORATION (HYPERICUM PERFORATION) [Concomitant]
  8. VALSARTAN [Concomitant]
  9. VENLAFAXINE HCL [Concomitant]
  10. PROPRANOLOL HYDROCHLORIDE [Concomitant]
  11. PAROXETINE HCL [Concomitant]

REACTIONS (38)
  - AGORAPHOBIA [None]
  - ALCOHOL ABUSE [None]
  - ALCOHOL WITHDRAWAL SYNDROME [None]
  - ANXIETY [None]
  - BANKRUPTCY [None]
  - CARDIAC FAILURE [None]
  - CONGESTIVE CARDIOMYOPATHY [None]
  - DEPRESSED MOOD [None]
  - DIZZINESS [None]
  - DRUG HYPERSENSITIVITY [None]
  - DRUG WITHDRAWAL SYNDROME [None]
  - ECZEMA [None]
  - EMOTIONAL DISTRESS [None]
  - FAMILY STRESS [None]
  - FEELING HOT [None]
  - HAEMORRHAGIC DIATHESIS [None]
  - HEART RATE INCREASED [None]
  - HYPERCHOLESTEROLAEMIA [None]
  - HYPERTENSION [None]
  - IRRITABILITY [None]
  - MARITAL PROBLEM [None]
  - MATERNAL DRUGS AFFECTING FOETUS [None]
  - NAUSEA [None]
  - OBESITY [None]
  - PANIC ATTACK [None]
  - PANIC REACTION [None]
  - PARANOIA [None]
  - PHOTOSENSITIVITY REACTION [None]
  - PREGNANCY [None]
  - PSYCHIATRIC SYMPTOM [None]
  - PURPURA [None]
  - RASH [None]
  - SELF ESTEEM DECREASED [None]
  - SLEEP DISORDER [None]
  - SOCIAL PHOBIA [None]
  - SUICIDAL IDEATION [None]
  - TENSION HEADACHE [None]
  - VASCULITIS [None]
